FAERS Safety Report 7754719-5 (Version None)
Quarter: 2011Q3

REPORT INFORMATION
  Report Type: 
  Country: None (occurrence: None)
  Receive Date: 20110915
  Receipt Date: 20110625
  Transmission Date: 20111222
  Serious: Yes (Other)
  Sender: FDA-Public Use
  Company Number: PHHY2010ES15296

PATIENT
  Age: 35 Year
  Sex: Male

DRUGS (5)
  1. OLANZAPINE [Suspect]
     Indication: PSYCHOTIC DISORDER
     Dosage: 2.5 MG, QD
     Dates: start: 20071201, end: 20080101
  2. OLANZAPINE [Suspect]
     Dosage: 10 MG, DAILY
  3. CLOZAPINE [Suspect]
     Indication: SCHIZOPHRENIA, PARANOID TYPE
     Dosage: 25 MG, QD
     Dates: start: 20070801
  4. FLURAZEPAM [Concomitant]
  5. AMISULPRIDE [Concomitant]

REACTIONS (6)
  - ASPARTATE AMINOTRANSFERASE INCREASED [None]
  - PSYCHOTIC DISORDER [None]
  - ALANINE AMINOTRANSFERASE INCREASED [None]
  - HEPATITIS C [None]
  - HEPATIC CIRRHOSIS [None]
  - HEPATITIS ACUTE [None]
